FAERS Safety Report 4681552-3 (Version None)
Quarter: 2005Q2

REPORT INFORMATION
  Report Type: 
  Country: None (occurrence: None)
  Receive Date: 20050603
  Receipt Date: 20050524
  Transmission Date: 20051028
  Serious: Yes (Hospitalization)
  Sender: FDA-Public Use
  Company Number: BR-ABBOTT-05P-020-0301623-00

PATIENT
  Age: 36 Year
  Sex: Female
  Weight: 87 kg

DRUGS (3)
  1. PLENTY [Suspect]
     Indication: WEIGHT DECREASED
     Route: 048
     Dates: start: 20050401, end: 20050510
  2. PLENTY [Suspect]
     Route: 048
     Dates: start: 20050510, end: 20050520
  3. CONDROFLEX [Concomitant]
     Indication: DRUG USE FOR UNKNOWN INDICATION
     Route: 048
     Dates: start: 20050401

REACTIONS (7)
  - AGITATION [None]
  - CARDIAC ARREST [None]
  - CHILLS [None]
  - DRUG WITHDRAWAL SYNDROME [None]
  - INSOMNIA [None]
  - MALAISE [None]
  - SYNCOPE [None]
